FAERS Safety Report 4395902-9 (Version None)
Quarter: 2004Q3

REPORT INFORMATION
  Report Type: 
  Country: None (occurrence: None)
  Receive Date: 20040708
  Receipt Date: 20040622
  Transmission Date: 20050211
  Serious: Yes (Hospitalization)
  Sender: FDA-Public Use
  Company Number: 198990

PATIENT
  Age: 51 Year
  Sex: Male

DRUGS (1)
  1. AVONEX [Suspect]
     Indication: MULTIPLE SCLEROSIS
     Dosage: 30 MCG QW IM
     Route: 030
     Dates: start: 20040218, end: 20040525

REACTIONS (4)
  - ABDOMINAL PAIN [None]
  - DEMYELINATION [None]
  - INTERVERTEBRAL DISC PROTRUSION [None]
  - THROMBOCYTOPENIA [None]
